FAERS Safety Report 17256935 (Version 1)
Quarter: 2020Q1

REPORT INFORMATION
  Report Type: Spontaneous
  Country: EG (occurrence: EG)
  Receive Date: 20200110
  Receipt Date: 20200110
  Transmission Date: 20200409
  Serious: Yes (Death, Other)
  Sender: FDA-Public Use
  Company Number: EG-SA-2020SA006779

PATIENT
  Age: 3 Year
  Sex: Male
  Weight: 14.5 kg

DRUGS (1)
  1. CEREZYME [Suspect]
     Active Substance: IMIGLUCERASE
     Indication: GAUCHER^S DISEASE
     Dosage: 60 IU/KG, QOW
     Route: 041
     Dates: start: 20161124

REACTIONS (1)
  - Status epilepticus [Fatal]
